FAERS Safety Report 6386403-7 (Version None)
Quarter: 2009Q4

REPORT INFORMATION
  Report Type: 
  Country: None (occurrence: None)
  Receive Date: 20091002
  Receipt Date: 20091001
  Transmission Date: 20100525
  Serious: Yes (Death, Hospitalization)
  Sender: FDA-Public Use
  Company Number: US-BAYER-200930750GPV

PATIENT
  Age: 53 Year
  Sex: Female
  Weight: 50 kg

DRUGS (7)
  1. SORAFENIB [Suspect]
     Indication: METASTATIC RENAL CELL CARCINOMA
     Route: 048
     Dates: start: 20090717, end: 20090811
  2. FENTANYL [Concomitant]
     Route: 062
     Dates: start: 20090702
  3. METAMIZOLE [Concomitant]
     Route: 048
     Dates: start: 20090702
  4. MORPHINE HYDROCHLORIDE [Concomitant]
     Route: 048
     Dates: start: 20090702
  5. AMPHOTERICIN B [Concomitant]
     Route: 048
     Dates: start: 20090804
  6. SPIRONOLACTONE [Concomitant]
     Route: 048
     Dates: start: 20090804
  7. CIPROFLOXACIN HYDROCHLORIDE [Concomitant]
     Dates: start: 20090804, end: 20090810

REACTIONS (4)
  - BLOOD CREATININE INCREASED [None]
  - C-REACTIVE PROTEIN INCREASED [None]
  - HYPONATRAEMIA [None]
  - METASTATIC RENAL CELL CARCINOMA [None]
